FAERS Safety Report 6427830-9 (Version None)
Quarter: 2009Q4

REPORT INFORMATION
  Report Type: 
  Country: None (occurrence: None)
  Receive Date: 20091104
  Receipt Date: 20091104
  Transmission Date: 20100525
  Serious: Yes (Life-Threatening, Hospitalization)
  Sender: FDA-Public Use
  Company Number: None

PATIENT
  Sex: Male

DRUGS (1)
  1. LEVEMIR [Suspect]
     Dosage: BY INJECTION, TWICE DAILY FOR ABOUT 4 WEEKS

REACTIONS (5)
  - DIABETIC KETOACIDOSIS [None]
  - INFLUENZA [None]
  - LABORATORY TEST ABNORMAL [None]
  - LOSS OF CONSCIOUSNESS [None]
  - MALAISE [None]
